FAERS Safety Report 10343587 (Version 1)
Quarter: 2014Q3

REPORT INFORMATION
  Report Type: Report from Study
  Country: BR (occurrence: BR)
  Receive Date: 20140725
  Receipt Date: 20140725
  Transmission Date: 20150326
  Serious: Yes (Other)
  Sender: FDA-Public Use
  Company Number: BR-GLAXOSMITHKLINE-A1082266A

PATIENT
  Sex: Male

DRUGS (2)
  1. SECOTEX [Concomitant]
     Active Substance: TAMSULOSIN
     Dosage: .4MG UNKNOWN
     Route: 065
  2. AVODART [Suspect]
     Active Substance: DUTASTERIDE
     Indication: PRODUCT USED FOR UNKNOWN INDICATION
     Dosage: .5MG UNKNOWN
     Route: 048

REACTIONS (2)
  - Treatment noncompliance [Recovered/Resolved]
  - Urinary retention [Recovered/Resolved]
